FAERS Safety Report 15518884 (Version 1)
Quarter: 2018Q4

REPORT INFORMATION
  Report Type: Spontaneous
  Country: CN (occurrence: CN)
  Receive Date: 20181017
  Receipt Date: 20181017
  Transmission Date: 20190205
  Serious: Yes (Other)
  Sender: FDA-Public Use
  Company Number: CN-FRESENIUS KABI-FK201810704

PATIENT
  Age: 70 Year
  Sex: Female

DRUGS (4)
  1. LIDOCAINE (MANUFACTURER UNKNOWN) [Suspect]
     Active Substance: LIDOCAINE
     Indication: EPIDURAL ANAESTHESIA
     Dosage: TEST DOSE OF 3ML 1,5 PERCENT
     Route: 008
  2. BUPIVACAINE (MANUFACTURER UNKNOWN) [Suspect]
     Active Substance: BUPIVACAINE
     Indication: EPIDURAL ANAESTHESIA
     Dosage: 1,5 PERCENT LIDOCIANE-0,5 PERCENT BUPIVACAINE MIXTURE
     Route: 008
  3. DEXMEDETOMIDINE. [Concomitant]
     Active Substance: DEXMEDETOMIDINE
     Indication: PRODUCT USED FOR UNKNOWN INDICATION
     Dosage: 0,3 MCG/KG/H
     Route: 041
  4. LIDOCAINE (MANUFACTURER UNKNOWN) [Suspect]
     Active Substance: LIDOCAINE
     Dosage: 1,5 PERCENT LIDOCAINE- 0,5 PERCENT BUPIVACAINE MIXTURE
     Route: 008

REACTIONS (1)
  - Hiccups [Recovered/Resolved]
